FAERS Safety Report 19308027 (Version 1)
Quarter: 2021Q2

REPORT INFORMATION
  Report Type: Spontaneous
  Country: DE (occurrence: DE)
  Receive Date: 20210525
  Receipt Date: 20210525
  Transmission Date: 20210717
  Serious: Yes (Hospitalization, Other)
  Sender: FDA-Public Use
  Company Number: DE-BAUSCH-BL-2021-017382

PATIENT
  Age: 79 Year
  Sex: Female

DRUGS (11)
  1. HYDROCORTISONE COMPARATOR [Suspect]
     Active Substance: HYDROCORTISONE
     Dosage: DOSE INCREASED
     Route: 048
  2. CALCIUM [Suspect]
     Active Substance: CALCIUM
     Indication: BONE DENSITY ABNORMAL
     Dosage: 1 DF, 1X/DAY:QD (1 OTHER APPLICATION)
     Route: 048
     Dates: start: 2014
  3. FUROSEMID [Concomitant]
     Active Substance: FUROSEMIDE
     Indication: OEDEMA
     Dosage: 25 MG, 1X/DAY:QD
     Route: 048
     Dates: start: 201401
  4. LERCANIDIPINE [Concomitant]
     Active Substance: LERCANIDIPINE
     Indication: HYPERTENSION
     Dosage: 10 MG, 2X/DAY:BID
     Route: 048
     Dates: start: 2015
  5. HYDROCORTISONE COMPARATOR [Suspect]
     Active Substance: HYDROCORTISONE
     Indication: ADRENAL INSUFFICIENCY
     Dosage: 20 MG, 2X/DAY:BID
     Route: 048
     Dates: start: 20150619
  6. RAMIPRIL. [Concomitant]
     Active Substance: RAMIPRIL
     Indication: HYPERTENSION
     Dosage: 5 MG, 2X/DAY:BID
     Route: 048
     Dates: start: 2015
  7. ALENDRONAT [Concomitant]
     Active Substance: ALENDRONATE SODIUM
     Indication: BONE DENSITY ABNORMAL
     Dosage: 70 MG, 1X/WEEK
     Route: 048
     Dates: start: 201301
  8. RIVAROXABAN [Concomitant]
     Active Substance: RIVAROXABAN
     Indication: ANTICOAGULANT THERAPY
     Dosage: 20 MG, 1X/DAY:QD
     Route: 048
     Dates: start: 201401
  9. VITAMIN D3 [Concomitant]
     Active Substance: CHOLECALCIFEROL
     Indication: BONE DENSITY ABNORMAL
     Dosage: 1 DF, 1X/DAY:QD (1 OTHER APPLICATION)
     Route: 048
     Dates: start: 2014
  10. PANTOPRAZOL [Concomitant]
     Active Substance: PANTOPRAZOLE SODIUM
     Indication: GASTRIC ULCER
     Dosage: 40 MG, 1X/DAY:QD
     Route: 048
     Dates: start: 201401
  11. BISOPROLOL [Concomitant]
     Active Substance: BISOPROLOL
     Indication: HYPERTENSION
     Dosage: 5 MG, 1X/DAY:QD
     Route: 048
     Dates: start: 20140601

REACTIONS (1)
  - Adrenocortical insufficiency acute [Recovered/Resolved]

NARRATIVE: CASE EVENT DATE: 20151101
